FAERS Safety Report 9646028 (Version 2)
Quarter: 2013Q4

REPORT INFORMATION
  Report Type: Spontaneous
  Country: JP (occurrence: JP)
  Receive Date: 20131025
  Receipt Date: 20131111
  Transmission Date: 20140711
  Serious: Yes (Other)
  Sender: FDA-Public Use
  Company Number: JP-PFIZER INC-2013301986

PATIENT
  Age: 43 Year
  Sex: Female

DRUGS (3)
  1. JZOLOFT [Suspect]
     Dosage: 25 MG, DAILY
     Route: 048
  2. RIVOTRIL [Concomitant]
     Dosage: 0.5 MG, DAILY
     Route: 048
  3. HALCION [Concomitant]
     Dosage: 0.25 MG, DAILY
     Route: 048

REACTIONS (1)
  - Sudden hearing loss [Unknown]
